FAERS Safety Report 7912378-2 (Version None)
Quarter: 2011Q4

REPORT INFORMATION
  Report Type: 
  Country: None (occurrence: None)
  Receive Date: 20111114
  Receipt Date: 20111102
  Transmission Date: 20120403
  Serious: Yes (Hospitalization)
  Sender: FDA-Public Use
  Company Number: US-BAYER-2011-065151

PATIENT
  Age: 37 Year
  Sex: Female

DRUGS (13)
  1. LEXAPRO [Concomitant]
     Indication: ANXIETY
  2. WELLBUTRIN [Concomitant]
     Dosage: UNK
     Dates: start: 20080101
  3. YASMIN [Suspect]
     Dosage: UNK
     Dates: start: 20080601, end: 20080801
  4. DROSPIRENONE AND ETHINYL ESTRADIOL [Suspect]
     Dosage: UNK
     Dates: start: 20090801, end: 20091001
  5. PLAQUENIL [Concomitant]
  6. LUNESTA [Concomitant]
     Indication: SLEEP DISORDER
     Dosage: UNK
     Dates: start: 20080201, end: 20090601
  7. YASMIN [Suspect]
     Indication: CONTRACEPTION
     Dosage: UNK
     Dates: start: 20060101, end: 20060101
  8. DROSPIRENONE AND ETHINYL ESTRADIOL [Suspect]
     Indication: CONTRACEPTION
     Dosage: UNK
     Dates: start: 20080801, end: 20090101
  9. LAMICTAL [Concomitant]
     Indication: BIPOLAR DISORDER
     Dosage: UNK
     Dates: start: 20080501
  10. WELLBUTRIN [Concomitant]
     Indication: BIPOLAR DISORDER
     Dosage: UNK
     Dates: start: 20050101, end: 20050101
  11. YASMIN [Suspect]
     Dosage: UNK
     Dates: start: 20090101, end: 20090701
  12. LEXAPRO [Concomitant]
     Indication: DEPRESSION
     Dosage: UNK
     Dates: start: 20050601, end: 20090601
  13. ELMIRON [Concomitant]
     Indication: UROGENITAL DISORDER
     Dosage: UNK
     Dates: start: 20040901

REACTIONS (4)
  - CHOLECYSTECTOMY [None]
  - HYDROCHOLECYSTIS [None]
  - CHOLECYSTITIS CHRONIC [None]
  - INJURY [None]
